FAERS Safety Report 13426094 (Version 1)
Quarter: 2017Q2

REPORT INFORMATION
  Report Type: Spontaneous
  Country: US (occurrence: US)
  Receive Date: 20170410
  Receipt Date: 20170410
  Transmission Date: 20170830
  Serious: No
  Sender: FDA-Public Use
  Company Number: None

PATIENT
  Age: 70 Year
  Sex: Male

DRUGS (1)
  1. CARBIDOPA/LEVODOPA 25/100 [Suspect]
     Active Substance: CARBIDOPA\LEVODOPA
     Indication: PARKINSONISM
     Route: 048
     Dates: start: 20170130, end: 20170206

REACTIONS (4)
  - General symptom [None]
  - Condition aggravated [None]
  - Product substitution issue [None]
  - Anxiety [None]

NARRATIVE: CASE EVENT DATE: 20170206
